FAERS Safety Report 21799809 (Version 1)
Quarter: 2022Q4

REPORT INFORMATION
  Report Type: Report from Study
  Country: US (occurrence: US)
  Receive Date: 20221230
  Receipt Date: 20221230
  Transmission Date: 20230113
  Serious: No
  Sender: FDA-Public Use
  Company Number: US-BIOVITRUM-2022US15596

PATIENT
  Sex: Female

DRUGS (1)
  1. KINERET [Suspect]
     Active Substance: ANAKINRA
     Indication: Product used for unknown indication
     Dates: start: 20221202

REACTIONS (6)
  - Gait disturbance [Unknown]
  - Asthenia [Unknown]
  - Pyrexia [Unknown]
  - Swelling [Unknown]
  - Blood pressure increased [Unknown]
  - Injection site rash [Unknown]
